FAERS Safety Report 24375158 (Version 5)
Quarter: 2024Q4

REPORT INFORMATION
  Report Type: Spontaneous
  Country: CA (occurrence: CA)
  Receive Date: 20240928
  Receipt Date: 20241023
  Transmission Date: 20250114
  Serious: Yes (Hospitalization, Other)
  Sender: CELLTRION
  Company Number: CA-PFIZER INC-202400101515

PATIENT

DRUGS (17)
  1. INFLECTRA [Suspect]
     Active Substance: INFLIXIMAB-DYYB
     Indication: Ankylosing spondylitis
     Dosage: 10 MG/KG, EVERY 4 WEEKS (720 MG, 4 WEEKS)
     Route: 042
     Dates: start: 20240503, end: 20240503
  2. INFLECTRA [Suspect]
     Active Substance: INFLIXIMAB-DYYB
     Dosage: 10 MG/KG, EVERY 4 WEEKS
     Route: 042
     Dates: start: 20240821
  3. INFLECTRA [Suspect]
     Active Substance: INFLIXIMAB-DYYB
     Dosage: 670 MG, AFTER 4 WEEKS AND 1 DAY (10 MG/KG, EVERY 4 WEEKS)
     Route: 042
     Dates: start: 20240919
  4. METHYLPHENIDATE [Concomitant]
     Active Substance: METHYLPHENIDATE
     Dosage: 1 DF
     Route: 048
     Dates: end: 20221205
  5. CELECOXIB [Concomitant]
     Active Substance: CELECOXIB
     Dosage: 40 MG
     Route: 048
  6. BETAMETHASONE [Concomitant]
     Active Substance: BETAMETHASONE
     Dosage: 1 DF
     Route: 065
  7. CITALOPRAM [Concomitant]
     Active Substance: CITALOPRAM
     Dosage: 1 DF, DOSAGE NOT AVAILABLE
     Route: 065
  8. CONCERTA [Concomitant]
     Active Substance: METHYLPHENIDATE HYDROCHLORIDE
     Dosage: 1 DF, DOSAGE NOT AVAILABLE
     Route: 065
  9. HERBALS\TURMERIC [Concomitant]
     Active Substance: HERBALS\TURMERIC
     Dosage: 1 DF, DOSAGE NOT AVAILABLE
     Route: 065
  10. FOLIC ACID [Concomitant]
     Active Substance: FOLIC ACID
     Dosage: 5 MG
     Route: 048
  11. LYRICA [Concomitant]
     Active Substance: PREGABALIN
     Dosage: 50 MG
     Route: 048
  12. METHADOL [Concomitant]
     Dosage: 7500 UG
     Route: 048
  13. METHOTREXATE [Concomitant]
     Active Substance: METHOTREXATE
     Dosage: 20 MG, WEEKLY
     Route: 048
     Dates: start: 2019
  14. MELOXICAM [Concomitant]
     Active Substance: MELOXICAM
     Dosage: 15 MG
     Route: 048
  15. OMEGA-3 FATTY ACIDS [Concomitant]
     Active Substance: OMEGA-3 FATTY ACIDS
     Dosage: 1 DF, DOSAGE NOT AVAILABLE
     Route: 065
  16. OXYCODONE HYDROCHLORIDE [Concomitant]
     Active Substance: OXYCODONE HYDROCHLORIDE
     Dosage: 20 MG
     Route: 048
  17. VITAMINS NOS [Concomitant]
     Active Substance: VITAMINS
     Dosage: 1 DF, DOSAGE NOT AVAILABLE
     Route: 065

REACTIONS (3)
  - Histoplasmosis [Recovering/Resolving]
  - Gastrointestinal wall thickening [Unknown]
  - Incorrect product administration duration [Unknown]

NARRATIVE: CASE EVENT DATE: 20240503
